FAERS Safety Report 14551479 (Version 1)
Quarter: 2018Q1

REPORT INFORMATION
  Report Type: Spontaneous
  Country: JP (occurrence: JP)
  Receive Date: 20180220
  Receipt Date: 20180220
  Transmission Date: 20180509
  Serious: Yes (Hospitalization, Other)
  Sender: FDA-Public Use
  Company Number: JP-SUN PHARMACEUTICAL INDUSTRIES LTD-2018RR-163504

PATIENT
  Age: 37 Year
  Sex: Female
  Weight: 57.9 kg

DRUGS (4)
  1. BORTEZOMIB [Suspect]
     Active Substance: BORTEZOMIB
     Indication: PLASMA CELL MYELOMA
     Dosage: 1.3 MG/M2, ON DAYS 1, 8, A 5-WEEK CYCLE
     Route: 058
  2. DEXAMETHASONE. [Suspect]
     Active Substance: DEXAMETHASONE
     Dosage: 20 MG/KG, DAYS 1-4 AND 15-18, A 4-WEEK CYCLE
     Route: 048
  3. LENALIDOMIDE [Suspect]
     Active Substance: LENALIDOMIDE
     Indication: PLASMA CELL MYELOMA
     Dosage: 5 MG/KG, ON DAYS 1-21, A 4-WEEK CYCLE
     Route: 048
  4. DEXAMETHASONE. [Suspect]
     Active Substance: DEXAMETHASONE
     Indication: PLASMA CELL MYELOMA
     Dosage: 20 MG/KG, ON DAYS 1, 2, 8, 9, 15, 16, 22 AND 23, A 5-WEEK CYCLE
     Route: 048

REACTIONS (2)
  - Condition aggravated [Unknown]
  - Drug effect incomplete [Unknown]
